FAERS Safety Report 14220981 (Version 2)
Quarter: 2017Q4

REPORT INFORMATION
  Report Type: Report from Study
  Country: US (occurrence: US)
  Receive Date: 20171124
  Receipt Date: 20171201
  Transmission Date: 20180321
  Serious: Yes (Other)
  Sender: FDA-Public Use
  Company Number: US-PFIZER INC-2017502859

PATIENT

DRUGS (2)
  1. AMIODARONE HCL [Suspect]
     Active Substance: AMIODARONE HYDROCHLORIDE
     Dosage: UNK
  2. CARDIOPLEGIA [Concomitant]
     Active Substance: CALCIUM CHLORIDE\MAGNESIUM CHLORIDE\POTASSIUM CHLORIDE\PROCAINE HCL\SODIUM CL
     Dosage: 500 ML, SINGLE (MAINTENANCE COLD (4-8 DEGREE CELSIUS) (HEART VIA THE AORTIC ROOT)

REACTIONS (1)
  - Transplant dysfunction [Unknown]
